FAERS Safety Report 5555226-0 (Version None)
Quarter: 2007Q4

REPORT INFORMATION
  Report Type: 
  Country: None (occurrence: None)
  Receive Date: 20071213
  Receipt Date: 20070814
  Transmission Date: 20080405
  Serious: No
  Sender: FDA-Public Use
  Company Number: US-AMGEN-KDL238642

PATIENT
  Sex: Female

DRUGS (17)
  1. ENBREL [Suspect]
     Indication: RHEUMATOID ARTHRITIS
     Route: 058
     Dates: start: 20070101
  2. ADVAIR DISKUS 100/50 [Concomitant]
  3. ALBUTEROL [Concomitant]
  4. CITRACAL [Concomitant]
  5. DUONEB [Concomitant]
  6. EVOXAC [Concomitant]
  7. FUROSEMIDE [Concomitant]
  8. ISOSORBIDE MONONITRATE [Concomitant]
  9. LIPITOR [Concomitant]
  10. LISINOPRIL AND HYDROCHLOROTHIAZIDE [Concomitant]
  11. METAMUCIL [Concomitant]
  12. NEXIUM [Concomitant]
  13. TYLENOL (CAPLET) [Concomitant]
  14. WARFARIN SODIUM [Concomitant]
  15. NEURONTIN [Concomitant]
  16. CLARITIN [Concomitant]
  17. SINGULAIR [Concomitant]

REACTIONS (1)
  - DEPRESSED MOOD [None]
